FAERS Safety Report 10268844 (Version 1)
Quarter: 2014Q2

REPORT INFORMATION
  Report Type: Spontaneous
  Country: US (occurrence: US)
  Receive Date: 20140630
  Receipt Date: 20140630
  Transmission Date: 20141212
  Serious: Yes (Hospitalization)
  Sender: FDA-Public Use
  Company Number: US-GLAXOSMITHKLINE-A1079054A

PATIENT
  Age: 75 Year
  Sex: Female

DRUGS (1)
  1. ADVAIR [Suspect]
     Indication: ASTHMA
     Route: 065
     Dates: start: 20081231

REACTIONS (2)
  - Pneumonia [Unknown]
  - Malaise [Unknown]
